FAERS Safety Report 20774350 (Version 1)
Quarter: 2022Q2

REPORT INFORMATION
  Report Type: Report from Study
  Country: CA (occurrence: CA)
  Receive Date: 20220502
  Receipt Date: 20220502
  Transmission Date: 20220721
  Serious: Yes (Hospitalization, Other)
  Sender: FDA-Public Use
  Company Number: CA-ABBVIE-22K-028-4318077-00

PATIENT
  Sex: Male

DRUGS (1)
  1. RINVOQ [Suspect]
     Active Substance: UPADACITINIB
     Indication: Rheumatoid arthritis
     Route: 048
     Dates: start: 20220218, end: 2022

REACTIONS (3)
  - Myocardial infarction [Unknown]
  - Dyspnoea [Unknown]
  - Asthenia [Unknown]

NARRATIVE: CASE EVENT DATE: 20220101
